FAERS Safety Report 17663046 (Version 2)
Quarter: 2020Q2

REPORT INFORMATION
  Report Type: Spontaneous
  Country: FR (occurrence: FR)
  Receive Date: 20200413
  Receipt Date: 20200504
  Transmission Date: 20200713
  Serious: Yes (Death, Other)
  Sender: FDA-Public Use
  Company Number: FR-ABBVIE-20K-056-3357598-00

PATIENT
  Age: 81 Year
  Sex: Male
  Weight: 80 kg

DRUGS (3)
  1. KALETRA [Suspect]
     Active Substance: LOPINAVIR\RITONAVIR
     Indication: CORONAVIRUS INFECTION
     Route: 048
     Dates: start: 20200313, end: 20200316
  2. NORADRENALINE [Concomitant]
     Active Substance: NOREPINEPHRINE
     Indication: CORONAVIRUS INFECTION
  3. LOVENOX [Concomitant]
     Active Substance: ENOXAPARIN SODIUM
     Indication: CORONAVIRUS INFECTION

REACTIONS (2)
  - Oliguria [Recovered/Resolved]
  - Coronavirus infection [Fatal]

NARRATIVE: CASE EVENT DATE: 2020
